FAERS Safety Report 8410012-9 (Version None)
Quarter: 2012Q2

REPORT INFORMATION
  Report Type: 
  Country: None (occurrence: None)
  Receive Date: 20120529
  Receipt Date: 20120516
  Transmission Date: 20120825
  Serious: Yes (Death, Hospitalization, Other)
  Sender: FDA-Public Use
  Company Number: DSA_57482_2012

PATIENT
  Age: 29 Year
  Sex: Female

DRUGS (5)
  1. IBUPROFEN [Suspect]
     Indication: PRODUCT USED FOR UNKNOWN INDICATION
     Dosage: DF X 1
  2. DESVENLAFAXINE SUCCINATE [Suspect]
     Indication: PRODUCT USED FOR UNKNOWN INDICATION
     Dosage: DF X 1
  3. BUPROPION HCL [Suspect]
     Indication: PRODUCT USED FOR UNKNOWN INDICATION
     Dosage: DF X1
  4. CITALOPRAM [Suspect]
     Indication: PRODUCT USED FOR UNKNOWN INDICATION
     Dosage: DF X 1
  5. QUETIAPINE [Suspect]
     Indication: PRODUCT USED FOR UNKNOWN INDICATION
     Dosage: DF X 1

REACTIONS (16)
  - BODY TEMPERATURE DECREASED [None]
  - PUPIL FIXED [None]
  - AREFLEXIA [None]
  - PERIPHERAL COLDNESS [None]
  - SINUS TACHYCARDIA [None]
  - BLOOD PH DECREASED [None]
  - GASTROINTESTINAL SOUNDS ABNORMAL [None]
  - DRY SKIN [None]
  - HYPOTENSION [None]
  - PULSELESS ELECTRICAL ACTIVITY [None]
  - CIRCULATORY COLLAPSE [None]
  - BLOOD BICARBONATE DECREASED [None]
  - MULTIPLE DRUG OVERDOSE [None]
  - BLOOD LACTIC ACID INCREASED [None]
  - CARDIAC ARREST [None]
  - HYPOXIC-ISCHAEMIC ENCEPHALOPATHY [None]
